FAERS Safety Report 24609103 (Version 4)
Quarter: 2024Q4

REPORT INFORMATION
  Report Type: Report from Study
  Country: US (occurrence: US)
  Receive Date: 20241112
  Receipt Date: 20241119
  Transmission Date: 20250114
  Serious: No
  Sender: NOVARTIS
  Company Number: US-002147023-NVSC2024US216637

PATIENT
  Sex: Male

DRUGS (1)
  1. COSENTYX [Suspect]
     Active Substance: SECUKINUMAB
     Indication: Product used for unknown indication
     Dosage: 150 MG, QMO
     Route: 065
     Dates: start: 202408

REACTIONS (5)
  - Injection site pain [Unknown]
  - Weight decreased [Unknown]
  - Needle issue [Unknown]
  - Accidental exposure to product [Unknown]
  - Device defective [Unknown]
